FAERS Safety Report 4333754-3 (Version None)
Quarter: 2004Q2

REPORT INFORMATION
  Report Type: 
  Country: None (occurrence: None)
  Receive Date: 20040406
  Receipt Date: 20040406
  Transmission Date: 20050107
  Serious: Yes (Life-Threatening)
  Sender: FDA-Public Use
  Company Number: None

PATIENT
  Age: 30 Year
  Sex: Female
  Weight: 48.5349 kg

DRUGS (9)
  1. DAPSONE [Suspect]
     Indication: ACQUIRED IMMUNODEFICIENCY SYNDROME
     Dosage: 100 MG DAILY ORAL
     Route: 048
     Dates: start: 20040403, end: 20040405
  2. PRIMAQUINE [Suspect]
     Indication: PNEUMOCYSTIS CARINII INFECTION
     Dosage: 15 MG DAILY ORAL
     Route: 048
     Dates: start: 20040324, end: 20040405
  3. SUSTIVA [Concomitant]
  4. VIREAD [Concomitant]
  5. EPIVIR [Concomitant]
  6. ACYCLOVIR [Concomitant]
  7. CLEOCIN [Concomitant]
  8. DIFLUCAN [Concomitant]
  9. LEUCOVORIN CALCIUM [Concomitant]

REACTIONS (1)
  - BLOOD METHAEMOGLOBIN PRESENT [None]
